FAERS Safety Report 11367912 (Version 1)
Quarter: 2015Q3

REPORT INFORMATION
  Report Type: Spontaneous
  Country: US (occurrence: US)
  Receive Date: 20150811
  Receipt Date: 20150811
  Transmission Date: 20151125
  Serious: No
  Sender: FDA-Public Use
  Company Number: US-ELI_LILLY_AND_COMPANY-US201211001942

PATIENT
  Age: 65 Year
  Sex: Male
  Weight: 86.17 kg

DRUGS (13)
  1. ASPIRIN. [Concomitant]
     Active Substance: ASPIRIN
     Dosage: 81MG, DAILY
  2. CIALIS [Concomitant]
     Active Substance: TADALAFIL
     Dosage: 20 MG, PRN
     Route: 048
  3. AXIRON [Suspect]
     Active Substance: TESTOSTERONE
     Dosage: 60MG, DAILY
  4. LIPITOR [Concomitant]
     Active Substance: ATORVASTATIN CALCIUM
     Dosage: 40MG, QHS
     Route: 048
  5. BENICAR [Concomitant]
     Active Substance: OLMESARTAN MEDOXOMIL
     Dosage: 40MG, DAILY
  6. DILTIAZEM [Concomitant]
     Active Substance: DILTIAZEM
     Dosage: 240MG, DAILY
     Route: 048
  7. ROLAIDS [Concomitant]
     Active Substance: CALCIUM CARBONATE\MAGNESIUM HYDROXIDE
     Dosage: UNK, AS NEEDED
  8. MULTIVITAMIN [Concomitant]
     Active Substance: VITAMINS
  9. AXIRON [Suspect]
     Active Substance: TESTOSTERONE
     Indication: BLOOD TESTOSTERONE DECREASED
     Dosage: 30 MG, QD
     Route: 061
     Dates: start: 201111
  10. VIAGRA [Concomitant]
     Active Substance: SILDENAFIL CITRATE
     Dosage: 100MG, DAILY
  11. CIALIS [Concomitant]
     Active Substance: TADALAFIL
     Dosage: 5MG, DAILY
  12. NYSTATIN W/TRIAMCINOLONE [Concomitant]
  13. LOSARTAN. [Concomitant]
     Active Substance: LOSARTAN
     Dosage: 100MG, DAILY
     Route: 048

REACTIONS (4)
  - Fungal skin infection [Unknown]
  - Joint swelling [Unknown]
  - Prostatic specific antigen increased [Recovered/Resolved]
  - Drug ineffective [Unknown]

NARRATIVE: CASE EVENT DATE: 20121025
